FAERS Safety Report 21140313 (Version 1)
Quarter: 2022Q3

REPORT INFORMATION
  Report Type: Spontaneous
  Country: US (occurrence: US)
  Receive Date: 20220728
  Receipt Date: 20220728
  Transmission Date: 20221027
  Serious: Yes (Hospitalization)
  Sender: FDA-Public Use
  Company Number: US-CADILA HEALTHCARE LIMITED-US-ZYDUS-080696

PATIENT

DRUGS (15)
  1. BACLOFEN [Suspect]
     Active Substance: BACLOFEN
     Indication: Bipolar II disorder
     Dosage: UNK
     Route: 048
     Dates: start: 201604
  2. BACLOFEN [Suspect]
     Active Substance: BACLOFEN
     Dosage: 437.9 MICROGRAM, QD, ITB
     Route: 037
     Dates: start: 201609
  3. BACLOFEN [Suspect]
     Active Substance: BACLOFEN
     Dosage: 1100 MICROGRAM, QD, ITB
     Route: 065
     Dates: start: 202001
  4. BACLOFEN [Suspect]
     Active Substance: BACLOFEN
     Dosage: 100 MICROGRAM, QD, ITB QUICKLY REDUCED TO
     Route: 037
     Dates: start: 202003
  5. BACLOFEN [Suspect]
     Active Substance: BACLOFEN
     Dosage: 275 MICROGRAM, QD, ITB PUMP DOSE WAS SLOWLY INCREASED
     Route: 037
     Dates: start: 202003
  6. BACLOFEN [Suspect]
     Active Substance: BACLOFEN
     Dosage: 230.2 MICROGRAM, QD
     Route: 065
     Dates: start: 202007
  7. BACLOFEN [Suspect]
     Active Substance: BACLOFEN
     Dosage: 375 MICROGRAM, QD
     Route: 065
     Dates: start: 202004
  8. BACLOFEN [Suspect]
     Active Substance: BACLOFEN
     Dosage: 278.1 MICROGRAM, QD, SLOWLY UP TITRATED
     Route: 065
     Dates: start: 202007
  9. BACLOFEN [Suspect]
     Active Substance: BACLOFEN
     Dosage: 178.2 MICROGRAM, QD TITRATED DOWN
     Route: 065
     Dates: start: 202008
  10. BACLOFEN [Suspect]
     Active Substance: BACLOFEN
     Dosage: 150 MICROGRAM, QD, DECREASED SLOWLY
     Route: 065
     Dates: start: 202010
  11. CARBIDOPA\LEVODOPA [Concomitant]
     Active Substance: CARBIDOPA\LEVODOPA
     Indication: Dystonia
     Dosage: UNK
     Route: 065
  12. VALPROIC ACID [Concomitant]
     Active Substance: VALPROIC ACID
     Indication: Dystonia
     Dosage: 375 MILLIGRAM, BID
     Route: 065
  13. LAMOTRIGINE [Concomitant]
     Active Substance: LAMOTRIGINE
     Indication: Bipolar disorder
     Dosage: 150 MILLIGRAM, BID
     Route: 065
  14. DIAZEPAM [Concomitant]
     Active Substance: DIAZEPAM
     Indication: Product used for unknown indication
     Dosage: 1 MILLIGRAM, BID
     Route: 065
  15. CITALOPRAM [Concomitant]
     Active Substance: CITALOPRAM HYDROBROMIDE
     Indication: Product used for unknown indication
     Dosage: 10 MILLIGRAM
     Route: 065

REACTIONS (1)
  - Behaviour disorder [Recovering/Resolving]
